FAERS Safety Report 5945321-6 (Version None)
Quarter: 2008Q4

REPORT INFORMATION
  Report Type: 
  Country: None (occurrence: None)
  Receive Date: 20081017
  Receipt Date: 20081006
  Transmission Date: 20090506
  Serious: Yes (Other)
  Sender: FDA-Public Use
  Company Number: THYM-1000798

PATIENT
  Sex: Female

DRUGS (2)
  1. THYMOGLOBULIN [Suspect]
     Indication: LIVER TRANSPLANT
     Dosage: INTRAVENOUS
     Route: 042
  2. THYMOGLOBULIN [Suspect]
     Indication: LIVER TRANSPLANT REJECTION
     Dosage: INTRAVENOUS
     Route: 042

REACTIONS (3)
  - ASPERGILLOSIS [None]
  - LIVER TRANSPLANT REJECTION [None]
  - SERUM SICKNESS [None]
